FAERS Safety Report 4678257-1 (Version None)
Quarter: 2005Q2

REPORT INFORMATION
  Report Type: 
  Country: None (occurrence: None)
  Receive Date: 20050601
  Receipt Date: 20050428
  Transmission Date: 20051028
  Serious: Yes (Hospitalization)
  Sender: FDA-Public Use
  Company Number: 200511484FR

PATIENT
  Age: 84 Year
  Sex: Male

DRUGS (5)
  1. LASILIX [Suspect]
     Route: 048
     Dates: start: 20050313, end: 20050318
  2. LOVENOX [Suspect]
     Route: 058
     Dates: start: 20050314, end: 20050323
  3. DEPAKENE [Suspect]
     Route: 048
     Dates: start: 20050311, end: 20050320
  4. CIPROFLOXACIN [Suspect]
     Route: 042
     Dates: start: 20050314, end: 20050321
  5. TAZOCILLINE [Suspect]
     Indication: PNEUMONIA
     Route: 042
     Dates: start: 20050314, end: 20050329

REACTIONS (2)
  - HYPOKALAEMIA [None]
  - PNEUMONIA [None]
